FAERS Safety Report 10193888 (Version 1)
Quarter: 2014Q2

REPORT INFORMATION
  Report Type: Spontaneous
  Country: US (occurrence: US)
  Receive Date: 20140524
  Receipt Date: 20140524
  Transmission Date: 20141212
  Serious: No
  Sender: FDA-Public Use
  Company Number: US-SANOFI-AVENTIS-2013SA050074

PATIENT
  Age: 78 Year
  Sex: Male
  Weight: 98.88 kg

DRUGS (14)
  1. LANTUS SOLOSTAR [Suspect]
     Indication: TYPE 2 DIABETES MELLITUS
     Dosage: DOSE AND DAILY DOSE: 10-15 UNITS DOSE:15 UNIT(S)
     Route: 058
     Dates: start: 20080901
  2. SOLOSTAR [Suspect]
     Indication: DEVICE THERAPY
     Dates: start: 20080901
  3. NOVOLOG [Concomitant]
     Indication: DIABETES MELLITUS
     Dosage: 8 UNITS IN THE AM AND 7 UNITS IN THE PM WITH HIS MEALS DOSE:15 UNIT(S)
     Dates: start: 2008
  4. GLIPIZIDE [Concomitant]
     Indication: DIABETES MELLITUS
     Dates: start: 1996
  5. LOSARTAN [Concomitant]
     Indication: HYPERTENSION
     Dates: start: 2004
  6. PRAVASTATIN [Concomitant]
     Indication: BLOOD CHOLESTEROL
     Dates: start: 2000
  7. PRO-AIR [Concomitant]
     Indication: CHRONIC OBSTRUCTIVE PULMONARY DISEASE
     Dosage: 2 PUFFS TWICE A DAY
     Dates: start: 2004
  8. ASPIRIN [Concomitant]
     Dates: start: 1995
  9. TYLENOL [Concomitant]
     Dates: start: 2011
  10. MULTIVITAMINS [Concomitant]
     Dates: start: 1985
  11. SYNTHROID [Concomitant]
     Indication: THYROID DISORDER
     Dates: start: 2012
  12. AMLODIPINE [Concomitant]
     Indication: BLOOD PRESSURE
     Dates: start: 2000
  13. BISOPROLOL [Concomitant]
     Indication: BLOOD PRESSURE
     Dates: start: 2000
  14. FLUPHENAZINE [Concomitant]
     Indication: VERTIGO
     Dates: start: 2012

REACTIONS (5)
  - Hypoglycaemia [Recovered/Resolved]
  - Hyperhidrosis [Recovered/Resolved]
  - Dizziness [Recovered/Resolved]
  - Glycosylated haemoglobin increased [Recovered/Resolved]
  - Blood glucose fluctuation [Recovered/Resolved]
